FAERS Safety Report 17127189 (Version 1)
Quarter: 2019Q4

REPORT INFORMATION
  Report Type: Spontaneous
  Country: CH (occurrence: CH)
  Receive Date: 20191209
  Receipt Date: 20191209
  Transmission Date: 20200122
  Serious: Yes (Other)
  Sender: FDA-Public Use
  Company Number: CH-TEVA-2019-CH-1149079

PATIENT
  Sex: Female

DRUGS (23)
  1. ATORVASTATIN [Concomitant]
     Active Substance: ATORVASTATIN
  2. IDARUBICINE [Suspect]
     Active Substance: IDARUBICIN
     Dosage: IN TOTAL
     Route: 065
     Dates: start: 20191015, end: 20191015
  3. ACIDUM FOLICUM [Concomitant]
     Active Substance: FOLIC ACID
  4. NEXIUM MUPS [Concomitant]
     Active Substance: ESOMEPRAZOLE
  5. LACRYVISC [Concomitant]
     Active Substance: CARBOMER
     Dosage: AS NECESSARY
  6. ONDANSETRON [Concomitant]
     Active Substance: ONDANSETRON
     Dosage: AS NECESSARY
  7. PURSANA [Concomitant]
     Active Substance: FIG FRUIT OIL\SORBITOL
     Dosage: AS NECESSARY
  8. ASPIRIN CARDIO [Concomitant]
     Active Substance: ASPIRIN
  9. VALTREX [Concomitant]
     Active Substance: VALACYCLOVIR HYDROCHLORIDE
  10. DAFALGAN [Concomitant]
     Active Substance: ACETAMINOPHEN
     Dosage: AS NECESSARY
  11. IDARUBICINE [Suspect]
     Active Substance: IDARUBICIN
     Dosage: IN TOTAL
     Route: 065
     Dates: start: 20191017, end: 20191017
  12. DISTRANEURIN [Concomitant]
     Active Substance: CLOMETHIAZOLE
     Dosage: AS NECESSARY
  13. MYCOSTATINE [Concomitant]
     Active Substance: NYSTATIN
  14. CEFEPIME [Concomitant]
     Active Substance: CEFEPIME HYDROCHLORIDE
     Dosage: AS NECESSARY
  15. TEMESTA [Concomitant]
     Dosage: AS NECESSARY
  16. LAXOBERON [Concomitant]
     Active Substance: SODIUM PICOSULFATE
     Dosage: AS NECESSARY
  17. TRETINOIN. [Suspect]
     Active Substance: TRETINOIN
     Route: 065
     Dates: start: 20191015, end: 20191019
  18. CETIRIZINE [Concomitant]
     Active Substance: CETIRIZINE HYDROCHLORIDE
     Dosage: AS NECESSARY
  19. MOVICOL [Concomitant]
     Active Substance: POLYETHYLENE GLYCOL 3350\POTASSIUM CHLORIDE\SODIUM BICARBONATE\SODIUM CHLORIDE
     Dosage: AS NECESSARY
  20. TRISENOX [Suspect]
     Active Substance: ARSENIC TRIOXIDE
     Route: 065
     Dates: start: 20191019, end: 20191019
  21. CLEXANE [Concomitant]
     Active Substance: ENOXAPARIN SODIUM
  22. LUVIT D3 [Concomitant]
     Active Substance: CHOLECALCIFEROL
  23. PASPERTIN [Concomitant]
     Dosage: AS NECESSARY

REACTIONS (1)
  - Electrocardiogram QT prolonged [Not Recovered/Not Resolved]
